FAERS Safety Report 6398972-1 (Version None)
Quarter: 2009Q4

REPORT INFORMATION
  Report Type: 
  Country: None (occurrence: None)
  Receive Date: 20091013
  Receipt Date: 20091006
  Transmission Date: 20100525
  Serious: Yes (Life-Threatening)
  Sender: FDA-Public Use
  Company Number: US-BAYER-200932931NA

PATIENT
  Sex: Female

DRUGS (1)
  1. MAGNEVIST [Suspect]
     Indication: ANGIOGRAM
     Dosage: TOTAL DAILY DOSE: 15 ML  UNIT DOSE: 20 ML
     Dates: start: 20090831, end: 20090831

REACTIONS (3)
  - BLOOD PRESSURE INCREASED [None]
  - EYE SWELLING [None]
  - EYELID OEDEMA [None]
